FAERS Safety Report 4601353-1 (Version None)
Quarter: 2005Q2

REPORT INFORMATION
  Report Type: 
  Country: None (occurrence: None)
  Receive Date: 20050204
  Receipt Date: 20040505
  Transmission Date: 20051028
  Serious: Yes (Hospitalization)
  Sender: FDA-Public Use
  Company Number: US-SHR-03-016274

PATIENT
  Age: 34 Year
  Sex: Female
  Weight: 82.4 kg

DRUGS (2)
  1. MIRENA [Suspect]
     Indication: MENORRHAGIA
     Dosage: 20 UG/DAY, CONT, INTRA-UTERINE
     Route: 015
     Dates: start: 20030829, end: 20030101
  2. IRON (IRON) [Concomitant]

REACTIONS (2)
  - DYSFUNCTIONAL UTERINE BLEEDING [None]
  - INTRA-UTERINE CONTRACEPTIVE DEVICE EXPELLED [None]
